FAERS Safety Report 8777444 (Version 1)
Quarter: 2012Q4

REPORT INFORMATION
  Report Type: 
  Country: CN (occurrence: CN)
  Receive Date: 20120911
  Receipt Date: 20120911
  Transmission Date: 20130627
  Serious: Yes (Hospitalization)
  Sender: FDA-Public Use
  Company Number: CN-ABBOTT-12P-035-0977853-00

PATIENT
  Age: 10 Year
  Sex: Female

DRUGS (4)
  1. DEPAKINE [Suspect]
     Indication: EPILEPSY
     Route: 048
     Dates: start: 20000101, end: 20100813
  2. DEPAKINE [Suspect]
     Indication: CEREBRAL PALSY
  3. NITRAZEPAM [Concomitant]
     Indication: PRODUCT USED FOR UNKNOWN INDICATION
  4. PREDNISOLONE [Concomitant]
     Indication: PRODUCT USED FOR UNKNOWN INDICATION
     Dates: start: 20100803, end: 20100810

REACTIONS (2)
  - Purpura [Recovering/Resolving]
  - Thrombocytopenia [Recovering/Resolving]
